FAERS Safety Report 8343005-0 (Version None)
Quarter: 2012Q2

REPORT INFORMATION
  Report Type: 
  Country: None (occurrence: None)
  Receive Date: 20120508
  Receipt Date: 20120430
  Transmission Date: 20120825
  Serious: Yes (Other)
  Sender: FDA-Public Use
  Company Number: PHHY2011DE61879

PATIENT
  Sex: Male

DRUGS (3)
  1. VALPROATE SODIUM [Concomitant]
     Dosage: 900 MG, QD
  2. CLOZAPINE [Suspect]
     Indication: SCHIZOPHRENIA, PARANOID TYPE
     Dosage: 450 MG, QD
     Route: 048
     Dates: start: 20110519, end: 20110706
  3. PIRENZEPINE [Concomitant]
     Dosage: 100 MG, QD
     Route: 048
     Dates: start: 20110501, end: 20110706

REACTIONS (4)
  - RHABDOMYOLYSIS [None]
  - MUSCLE INJURY [None]
  - BLOOD CREATINE PHOSPHOKINASE INCREASED [None]
  - ASPARTATE AMINOTRANSFERASE INCREASED [None]
